FAERS Safety Report 14336565 (Version 1)
Quarter: 2017Q4

REPORT INFORMATION
  Report Type: Spontaneous
  Country: FR (occurrence: FR)
  Receive Date: 20171229
  Receipt Date: 20171229
  Transmission Date: 20180321
  Serious: Yes (Hospitalization)
  Sender: FDA-Public Use
  Company Number: FR-CIPLA LTD.-2017FR27459

PATIENT

DRUGS (6)
  1. LITHIUM. [Suspect]
     Active Substance: LITHIUM
     Dosage: 10 DF, UNK
     Route: 048
     Dates: start: 20170803, end: 20170803
  2. CLOPIDOGREL [Suspect]
     Active Substance: CLOPIDOGREL BISULFATE
     Dosage: 20 DF, UNK
     Route: 048
     Dates: start: 20170803, end: 20170803
  3. LAMOTRIGINE. [Suspect]
     Active Substance: LAMOTRIGINE
     Dosage: 10 DF, UNK
     Route: 048
     Dates: start: 20170803, end: 20170803
  4. ZOPICLONE [Suspect]
     Active Substance: ZOPICLONE
     Dosage: 12 DF, UNK
     Route: 048
     Dates: start: 20170803, end: 20170803
  5. QUETIAPINE. [Suspect]
     Active Substance: QUETIAPINE
     Dosage: 20 DF, UNK
     Route: 047
     Dates: start: 20170803, end: 20170803
  6. SECTRAL [Suspect]
     Active Substance: ACEBUTOLOL HYDROCHLORIDE
     Dosage: 4 DF, UNK
     Route: 048
     Dates: start: 20170803, end: 20170803

REACTIONS (4)
  - Disturbance in attention [Recovered/Resolved]
  - Tremor [Recovered/Resolved]
  - Somnolence [Recovered/Resolved]
  - Hypotension [Recovered/Resolved]

NARRATIVE: CASE EVENT DATE: 20170804
